FAERS Safety Report 24538334 (Version 1)
Quarter: 2024Q4

REPORT INFORMATION
  Report Type: Spontaneous
  Country: BE (occurrence: BE)
  Receive Date: 20241023
  Receipt Date: 20241023
  Transmission Date: 20250115
  Serious: Yes (Other)
  Sender: NOVARTIS
  Company Number: BE-ELI_LILLY_AND_COMPANY-BE202410003451

PATIENT
  Age: 63 Year
  Sex: Female

DRUGS (3)
  1. LETROZOLE [Suspect]
     Active Substance: LETROZOLE
     Indication: Adenocarcinoma
     Dosage: UNK
     Route: 065
  2. ABEMACICLIB [Suspect]
     Active Substance: ABEMACICLIB
     Indication: Adenocarcinoma
     Dosage: 300 MG, QD (150 MG, BID)
     Route: 048
  3. XGEVA [Suspect]
     Active Substance: DENOSUMAB
     Indication: Adenocarcinoma
     Dosage: UNK
     Route: 065

REACTIONS (4)
  - Pulmonary vasculitis [Unknown]
  - Organising pneumonia [Unknown]
  - Malignant neoplasm progression [Recovering/Resolving]
  - Interstitial lung disease [Unknown]

NARRATIVE: CASE EVENT DATE: 20231001
